FAERS Safety Report 12792212 (Version 1)
Quarter: 2016Q3

REPORT INFORMATION
  Report Type: Spontaneous
  Country: US (occurrence: US)
  Receive Date: 20160926
  Receipt Date: 20160926
  Transmission Date: 20161109
  Serious: No
  Sender: FDA-Public Use
  Company Number: None

PATIENT
  Age: 78 Year
  Sex: Female
  Weight: 79.38 kg

DRUGS (19)
  1. MELATONIN [Concomitant]
     Active Substance: MELATONIN
  2. POTASSIUM [Concomitant]
     Active Substance: POTASSIUM
  3. NOVOLIN [Concomitant]
     Active Substance: INSULIN HUMAN
  4. VITAMIN D [Concomitant]
     Active Substance: CHOLECALCIFEROL
  5. DAILY VITAMIN/MINERAL [Concomitant]
  6. LYRICA [Suspect]
     Active Substance: PREGABALIN
     Indication: DIABETIC NEUROPATHY
     Route: 048
     Dates: start: 20160729, end: 20160729
  7. LASIX [Concomitant]
     Active Substance: FUROSEMIDE
  8. LEVOTHYROXIN [Concomitant]
     Active Substance: LEVOTHYROXINE
  9. CASCERA [Concomitant]
  10. LISINOPRIL. [Concomitant]
     Active Substance: LISINOPRIL
  11. ALPHA LIPOR [Concomitant]
  12. ACETAMINOPHEN. [Concomitant]
     Active Substance: ACETAMINOPHEN
  13. ANTIBOTICS [Concomitant]
  14. AMLODIPINE [Concomitant]
     Active Substance: AMLODIPINE BESYLATE
  15. METOPROLOL. [Concomitant]
     Active Substance: METOPROLOL
  16. ASPIRIN. [Concomitant]
     Active Substance: ASPIRIN
  17. SENNA [Concomitant]
     Active Substance: SENNA LEAF\SENNOSIDES\SENNOSIDES A AND B
  18. OXYCODONE [Concomitant]
     Active Substance: OXYCODONE
  19. PROBIOTIC [Concomitant]
     Active Substance: PROBIOTICS NOS

REACTIONS (7)
  - Amnesia [None]
  - Hangover [None]
  - Asthenia [None]
  - Bradyphrenia [None]
  - Seizure [None]
  - Disorientation [None]
  - Somnolence [None]
